FAERS Safety Report 22168246 (Version 2)
Quarter: 2023Q2

REPORT INFORMATION
  Report Type: Spontaneous
  Country: US (occurrence: US)
  Receive Date: 20230403
  Receipt Date: 20230512
  Transmission Date: 20230722
  Serious: No
  Sender: FDA-Public Use
  Company Number: US-PFIZER INC-PV202300059640

PATIENT
  Age: 74 Year
  Sex: Male

DRUGS (6)
  1. TRAZIMERA [Suspect]
     Active Substance: TRASTUZUMAB-QYYP
     Indication: Squamous cell carcinoma of skin
     Dosage: 672 MG, CYCLIC, (1ST 672 2 VIALS/150 150MG +420MG 504 2VIALS)
  2. TRAZIMERA [Suspect]
     Active Substance: TRASTUZUMAB-QYYP
     Indication: Metastases to lung
  3. TRAZIMERA [Suspect]
     Active Substance: TRASTUZUMAB-QYYP
     Indication: Skin cancer
  4. TRAZIMERA [Suspect]
     Active Substance: TRASTUZUMAB-QYYP
     Indication: Nausea
  5. TRAZIMERA [Suspect]
     Active Substance: TRASTUZUMAB-QYYP
     Indication: Vomiting
  6. TRAZIMERA [Suspect]
     Active Substance: TRASTUZUMAB-QYYP
     Indication: Metastasis

REACTIONS (6)
  - Neoplasm progression [Unknown]
  - Balance disorder [Unknown]
  - Cardiac disorder [Unknown]
  - Pulmonary mass [Unknown]
  - Lung infiltration [Unknown]
  - Off label use [Unknown]
